FAERS Safety Report 25556843 (Version 1)
Quarter: 2025Q3

REPORT INFORMATION
  Report Type: Spontaneous
  Country: US (occurrence: None)
  Receive Date: 20250715
  Receipt Date: 20250715
  Transmission Date: 20251021
  Serious: Yes (Disabling)
  Sender: FDA-CTU
  Company Number: None

PATIENT
  Age: 60 Year
  Sex: Female
  Weight: 82.35 kg

DRUGS (9)
  1. OZEMPIC [Suspect]
     Active Substance: SEMAGLUTIDE
     Route: 030
  2. IRBESARTAN [Concomitant]
     Active Substance: IRBESARTAN
  3. CARVEDILOL [Concomitant]
     Active Substance: CARVEDILOL
  4. GLIPIZIDE [Concomitant]
     Active Substance: GLIPIZIDE
  5. VITAMINS [Concomitant]
     Active Substance: VITAMINS
  6. D [Concomitant]
  7. COENZYME Q10 [Concomitant]
     Active Substance: DIETARY SUPPLEMENT\UBIDECARENONE
  8. FISH OIL [Concomitant]
     Active Substance: FISH OIL
  9. MAGNESIUM [Concomitant]
     Active Substance: MAGNESIUM

REACTIONS (6)
  - Vomiting [None]
  - Visual impairment [None]
  - Escherichia infection [None]
  - Weight decreased [None]
  - Dehydration [None]
  - Hyperkeratosis [None]

NARRATIVE: CASE EVENT DATE: 20220515
